FAERS Safety Report 8208750-6 (Version None)
Quarter: 2012Q1

REPORT INFORMATION
  Report Type: 
  Country: None (occurrence: None)
  Receive Date: 20120314
  Receipt Date: 20120308
  Transmission Date: 20120608
  Serious: Yes (Hospitalization, Congenital Anomaly, Other)
  Sender: FDA-Public Use
  Company Number: US-PFIZER INC-2011158554

PATIENT
  Sex: Female
  Weight: 2.45 kg

DRUGS (13)
  1. EFFEXOR XR [Suspect]
     Dosage: 112.5 MG, 2X/DAY
     Route: 064
     Dates: start: 20030728
  2. ALBUTEROL [Concomitant]
     Dosage: INHALE 1-2 PUFF AS NEEDED
     Route: 064
     Dates: start: 20070125
  3. EFFEXOR XR [Suspect]
     Dosage: 150 MG, 1X/DAY
     Route: 064
  4. MULTI-VITAMINS [Concomitant]
     Dosage: ONE TABLET DAILY
     Route: 064
     Dates: start: 20070326
  5. EFFEXOR XR [Suspect]
     Indication: MAJOR DEPRESSION
     Dosage: 37.5 MG, UNK
     Route: 064
     Dates: start: 20021204, end: 20021201
  6. EFFEXOR XR [Suspect]
     Dosage: 37.5 MG, 1X/DAY
     Route: 064
  7. EFFEXOR XR [Suspect]
     Dosage: 75 MG DAILY
     Route: 064
     Dates: end: 20030421
  8. EFFEXOR XR [Suspect]
     Dosage: 75 MG, 2X/DAY
     Route: 064
     Dates: start: 20030727, end: 20030727
  9. EFFEXOR XR [Suspect]
     Dosage: 75 MG, 2X/DAY
     Route: 064
     Dates: start: 20031229
  10. EFFEXOR XR [Suspect]
     Indication: ANXIETY
     Dosage: 75 MG, 2X/DAY
     Route: 064
     Dates: start: 20021201
  11. EFFEXOR XR [Suspect]
     Dosage: 37.5 MG, 2X/DAY
     Route: 064
     Dates: start: 20030726, end: 20030726
  12. EFFEXOR XR [Suspect]
     Dosage: 75 MG DAILY
     Route: 064
     Dates: start: 20060502
  13. EFFEXOR XR [Suspect]
     Dosage: 75 MG, 1X/DAY
     Route: 064

REACTIONS (20)
  - FALLOT'S TETRALOGY [None]
  - ATRIAL SEPTAL DEFECT [None]
  - PATENT DUCTUS ARTERIOSUS [None]
  - CARDIOMEGALY [None]
  - TRICUSPID VALVE INCOMPETENCE [None]
  - AORTIC VALVE INCOMPETENCE [None]
  - FOETAL GROWTH RESTRICTION [None]
  - HYPOGLYCAEMIA [None]
  - VENTRICULAR SEPTAL DEFECT [None]
  - UMBILICAL CORD AROUND NECK [None]
  - URINARY TRACT MALFORMATION [None]
  - MITRAL VALVE INCOMPETENCE [None]
  - UROSEPSIS [None]
  - SEPSIS [None]
  - JAUNDICE NEONATAL [None]
  - MATERNAL EXPOSURE TIMING UNSPECIFIED [None]
  - RIGHT VENTRICLE OUTFLOW TRACT OBSTRUCTION [None]
  - HEART DISEASE CONGENITAL [None]
  - UMBILICAL CORD ABNORMALITY [None]
  - BRONCHOPNEUMONIA [None]
